FAERS Safety Report 6555081-6 (Version None)
Quarter: 2010Q1

REPORT INFORMATION
  Report Type: 
  Country: None (occurrence: None)
  Receive Date: 20100126
  Receipt Date: 20100126
  Transmission Date: 20100710
  Serious: Yes (Other)
  Sender: FDA-Public Use
  Company Number: None

PATIENT
  Age: 8 Year
  Sex: Female
  Weight: 77.1115 kg

DRUGS (1)
  1. CIPROFLOXACIN HCL [Suspect]
     Indication: MALIGNANT TUMOUR EXCISION
     Dosage: 500 MG BID BY MOUTH
     Route: 048
     Dates: start: 20091124, end: 20091130

REACTIONS (5)
  - ASTHENIA [None]
  - HALLUCINATION, VISUAL [None]
  - HEADACHE [None]
  - NAUSEA [None]
  - RESTLESSNESS [None]
